FAERS Safety Report 24007684 (Version 1)
Quarter: 2024Q2

REPORT INFORMATION
  Report Type: Spontaneous
  Country: IN (occurrence: IN)
  Receive Date: 20240625
  Receipt Date: 20240625
  Transmission Date: 20240716
  Serious: Yes (Other)
  Sender: FDA-Public Use
  Company Number: IN-ROCHE-10000004927

PATIENT
  Age: 54 Year
  Sex: Male

DRUGS (1)
  1. PERJETA [Suspect]
     Active Substance: PERTUZUMAB
     Indication: Salivary gland cancer
     Route: 042
     Dates: start: 20240610

REACTIONS (3)
  - Off label use [Unknown]
  - Pancytopenia [Unknown]
  - Hypotension [Unknown]
